FAERS Safety Report 24438539 (Version 2)
Quarter: 2024Q4

REPORT INFORMATION
  Report Type: Spontaneous
  Country: US (occurrence: US)
  Receive Date: 20241015
  Receipt Date: 20241029
  Transmission Date: 20250115
  Serious: No
  Sender: Haleon PLC
  Company Number: US-HALEON-2201394

PATIENT
  Age: 64 Year
  Sex: Female

DRUGS (1)
  1. ALLI [Suspect]
     Active Substance: ORLISTAT
     Indication: Weight decreased
     Dosage: 1 - CAPSULES (CPS)

REACTIONS (4)
  - Nausea [Unknown]
  - Product complaint [Unknown]
  - Poor quality product administered [Unknown]
  - Product counterfeit [Unknown]
